FAERS Safety Report 9121123 (Version 1)
Quarter: 2013Q1

REPORT INFORMATION
  Report Type: Spontaneous
  Country: KR (occurrence: KR)
  Receive Date: 20130226
  Receipt Date: 20130226
  Transmission Date: 20140127
  Serious: Yes (Hospitalization)
  Sender: FDA-Public Use
  Company Number: PHHY2013KR017904

PATIENT
  Age: 31 Year
  Sex: Female

DRUGS (14)
  1. CERTICAN [Suspect]
     Indication: RENAL TRANSPLANT
     Dosage: 3.5 MG/DAY (1.75 MG/DOSE)
     Route: 048
     Dates: start: 20120713, end: 20130131
  2. LANTUS [Concomitant]
  3. APIDRA [Concomitant]
  4. GRANDPAZE F [Concomitant]
  5. VYTORIN [Concomitant]
  6. TRIDOL [Concomitant]
  7. OMACOR [Concomitant]
  8. SEPTRIN [Concomitant]
  9. SYNTHYROID [Concomitant]
  10. PROGRAF [Concomitant]
  11. ISOKET RETARD [Concomitant]
  12. ISOSORBIDE 5-MONONITRATO GEN MED [Concomitant]
  13. FERROBA-U [Concomitant]
  14. FOLIC ACID [Concomitant]

REACTIONS (3)
  - Blood creatinine increased [Recovered/Resolved]
  - Impaired healing [Recovered/Resolved]
  - Thermal burn [Unknown]
